FAERS Safety Report 19858769 (Version 1)
Quarter: 2021Q3

REPORT INFORMATION
  Report Type: Spontaneous
  Country: US (occurrence: US)
  Receive Date: 20210921
  Receipt Date: 20210921
  Transmission Date: 20211014
  Serious: No
  Sender: FDA-Public Use
  Company Number: US-AUROBINDO-AUR-APL-2021-011589

PATIENT
  Age: 69 Year
  Sex: Female
  Weight: 58.9 kg

DRUGS (1)
  1. ALENDRONATE SODIUM TABLETS USP 70MG [Suspect]
     Active Substance: ALENDRONATE SODIUM
     Indication: OSTEOPOROSIS
     Dosage: 1 DOSAGE FORM, EVERY WEEK
     Route: 065
     Dates: start: 20210314, end: 20210314

REACTIONS (4)
  - Vision blurred [Unknown]
  - Loss of personal independence in daily activities [Unknown]
  - Diplopia [Unknown]
  - Ocular hyperaemia [Unknown]

NARRATIVE: CASE EVENT DATE: 20210314
